FAERS Safety Report 6034567-7 (Version None)
Quarter: 2009Q1

REPORT INFORMATION
  Report Type: 
  Country: None (occurrence: None)
  Receive Date: 20090108
  Receipt Date: 20081223
  Transmission Date: 20090719
  Serious: Yes (Death)
  Sender: FDA-Public Use
  Company Number: 8040747

PATIENT
  Age: 48 Year
  Sex: Female

DRUGS (12)
  1. ACETAMINOPHEN AND HYDROCODONE BITARTRATE [Suspect]
     Dates: end: 20070101
  2. BUPROPION HCL [Suspect]
     Dates: end: 20070101
  3. VENLAFAXINE HCL [Suspect]
     Dates: end: 20070101
  4. TRAMADOL HCL [Suspect]
     Dates: end: 20070101
  5. THIAZOLIDINEDIONE [Suspect]
     Dates: end: 20070101
  6. COCAINE [Suspect]
     Dates: end: 20070101
  7. IRBESARTAN [Suspect]
     Dates: end: 20070101
  8. HYDROCHLOROTHIAZIDE [Suspect]
     Dates: end: 20070101
  9. DIPHENOXYLATE HCL + ATROPINE SULFATE [Suspect]
     Dates: end: 20070101
  10. OLANZAPINE [Suspect]
     Dates: end: 20070101
  11. QUINAPRIL [Suspect]
     Dates: end: 20070101
  12. BENZODIAZEPINE [Suspect]
     Dates: end: 20070101

REACTIONS (2)
  - COMPLETED SUICIDE [None]
  - INTENTIONAL DRUG MISUSE [None]
